FAERS Safety Report 19267848 (Version 2)
Quarter: 2021Q2

REPORT INFORMATION
  Report Type: Report from Study
  Country: None (occurrence: BR)
  Receive Date: 20210518
  Receipt Date: 20210518
  Transmission Date: 20210717
  Serious: Yes (Other)
  Sender: FDA-Public Use
  Company Number: BR-ABBVIE-20K-020-3706694-00

PATIENT
  Age: 62 Year
  Sex: Female
  Weight: 70 kg

DRUGS (6)
  1. UPADACITINIB [Suspect]
     Active Substance: UPADACITINIB
     Route: 048
     Dates: start: 2021
  2. OSCAL D [Concomitant]
     Active Substance: CALCIUM CARBONATE\CHOLECALCIFEROL
     Indication: PRODUCT USED FOR UNKNOWN INDICATION
     Dosage: UNSPECIFIED DOSE
  3. UPADACITINIB [Suspect]
     Active Substance: UPADACITINIB
     Dosage: UNSPECIFIED DOSE
     Route: 048
     Dates: start: 202102, end: 2021
  4. PREDSIM [Concomitant]
     Active Substance: PREDNISOLONE
     Indication: ARTHRITIS
     Dosage: UNSPECIFIED DOSE
  5. UPADACITINIB [Suspect]
     Active Substance: UPADACITINIB
     Indication: RHEUMATOID ARTHRITIS
     Dosage: UNSPECIFIED DOSE
     Route: 048
  6. CONDROFLEX [Concomitant]
     Active Substance: CHONDROITIN SULFATE (BOVINE)\GLUCOSAMINE SULFATE
     Indication: PRODUCT USED FOR UNKNOWN INDICATION
     Dosage: UNSPECIFIED DOSE

REACTIONS (3)
  - Lung disorder [Recovered/Resolved]
  - COVID-19 [Recovered/Resolved]
  - Asthma [Recovered/Resolved]

NARRATIVE: CASE EVENT DATE: 20201204
